FAERS Safety Report 9822295 (Version 3)
Quarter: 2017Q3

REPORT INFORMATION
  Report Type: Report from Study
  Country: IT (occurrence: IT)
  Receive Date: 20140116
  Receipt Date: 20170822
  Transmission Date: 20171128
  Serious: Yes (Other)
  Sender: FDA-Public Use
  Company Number: IT-ASTELLAS-2014US000429

PATIENT

DRUGS (1)
  1. ERLOTINIB [Suspect]
     Active Substance: ERLOTINIB
     Indication: NON-SMALL CELL LUNG CANCER
     Route: 048

REACTIONS (9)
  - Rash [Unknown]
  - Asthenia [Unknown]
  - Nausea [Unknown]
  - Neurological symptom [Unknown]
  - Nail disorder [Unknown]
  - Dry skin [Unknown]
  - Pruritus [Unknown]
  - Vomiting [Unknown]
  - Diarrhoea [Unknown]
